FAERS Safety Report 6169722-9 (Version None)
Quarter: 2009Q2

REPORT INFORMATION
  Report Type: 
  Country: None (occurrence: None)
  Receive Date: 20090424
  Receipt Date: 20090210
  Transmission Date: 20091009
  Serious: No
  Sender: FDA-Public Use
  Company Number: ALL1-2009-00361

PATIENT
  Age: 16 Year
  Sex: Male
  Weight: 71.2 kg

DRUGS (1)
  1. VYVANSE [Suspect]
     Indication: ATTENTION DEFICIT/HYPERACTIVITY DISORDER
     Dosage: 30 MG, 1X/DAY:QD, ORAL
     Route: 048
     Dates: start: 20080101, end: 20090101

REACTIONS (5)
  - ANOREXIA [None]
  - FLUSHING [None]
  - HEADACHE [None]
  - MOOD ALTERED [None]
  - OFF LABEL USE [None]
